FAERS Safety Report 8575647-1 (Version None)
Quarter: 2012Q3

REPORT INFORMATION
  Report Type: 
  Country: None (occurrence: None)
  Receive Date: 20120807
  Receipt Date: 20120730
  Transmission Date: 20120928
  Serious: Yes (Hospitalization, Other)
  Sender: FDA-Public Use
  Company Number: DE-PFIZER INC-2012108745

PATIENT
  Age: 70 Year
  Sex: Male
  Weight: 86 kg

DRUGS (14)
  1. AMIODARONE HCL [Suspect]
     Dosage: UNK
     Route: 042
  2. AMIODARONE HCL [Suspect]
     Dosage: THREE TABLETS PER DAY
     Route: 048
  3. AMIODARONE HCL [Suspect]
     Dosage: ONE TABLET PER DAY FOR FIVES DAYS A WEEK
     Route: 048
  4. BUDESONIDE [Concomitant]
  5. BERODUAL [Concomitant]
  6. MULTAQ [Concomitant]
     Dosage: UNK
  7. OSYROL [Concomitant]
  8. MARCUMAR [Concomitant]
  9. AMIODARONE HCL [Suspect]
     Dosage: UNK
     Route: 048
  10. DIGITOXIN TAB [Concomitant]
  11. AMIODARONE HCL [Suspect]
     Dosage: 4X0.25 (EVERY SIX HOURS)
     Route: 048
  12. AMIODARONE HCL [Suspect]
     Dosage: 1 DF, 3X/DAY
     Route: 048
  13. KARVEA [Concomitant]
  14. AMIODARONE HCL [Suspect]
     Dosage: UNK
     Route: 048

REACTIONS (5)
  - GENERAL PHYSICAL HEALTH DETERIORATION [None]
  - ARRHYTHMIA [None]
  - CHEST DISCOMFORT [None]
  - ANGINA PECTORIS [None]
  - SLEEP DISORDER [None]
